FAERS Safety Report 9854207 (Version 3)
Quarter: 2014Q2

REPORT INFORMATION
  Report Type: Report from Study
  Country: FR (occurrence: FR)
  Receive Date: 20140130
  Receipt Date: 20140414
  Transmission Date: 20141212
  Serious: Yes (Hospitalization, Other)
  Sender: FDA-Public Use
  Company Number: FR-ROCHE-1280293

PATIENT
  Age: 67 Year
  Sex: Female
  Weight: 61 kg

DRUGS (12)
  1. RITUXIMAB [Suspect]
     Indication: CHRONIC LYMPHOCYTIC LEUKAEMIA
     Route: 041
     Dates: start: 20130822, end: 20130822
  2. RITUXIMAB [Suspect]
     Route: 042
     Dates: start: 20130228, end: 20130228
  3. RITUXIMAB [Suspect]
     Route: 042
     Dates: start: 20130403, end: 20130530
  4. RITUXIMAB [Suspect]
     Route: 042
     Dates: start: 20130822, end: 20140111
  5. BACTRIM [Suspect]
     Indication: PRODUCT USED FOR UNKNOWN INDICATION
     Route: 048
     Dates: start: 20130228, end: 20130912
  6. CYCLOPHOSPHAMIDE [Suspect]
     Indication: CHRONIC LYMPHOCYTIC LEUKAEMIA
     Route: 048
     Dates: start: 20130228, end: 20130405
  7. CYCLOPHOSPHAMIDE [Suspect]
     Route: 048
     Dates: start: 20130502, end: 20130601
  8. FLUDARABINE [Suspect]
     Indication: CHRONIC LYMPHOCYTIC LEUKAEMIA
     Route: 048
     Dates: start: 20130222, end: 20130405
  9. FLUDARABINE [Suspect]
     Route: 048
     Dates: start: 20130502, end: 20130601
  10. VALACICLOVIR [Concomitant]
     Route: 048
     Dates: start: 20130228, end: 20130912
  11. ACICLOVIR [Concomitant]
     Dosage: 4/DAY
     Route: 048
     Dates: start: 20130913
  12. INEXIUM [Concomitant]
     Route: 048
     Dates: start: 20130228, end: 20130912

REACTIONS (5)
  - Bone marrow failure [Recovered/Resolved]
  - Pyrexia [Recovered/Resolved]
  - Febrile neutropenia [Recovered/Resolved]
  - Neutropenia [Recovered/Resolved]
  - Febrile neutropenia [Not Recovered/Not Resolved]
